FAERS Safety Report 23783615 (Version 1)
Quarter: 2024Q2

REPORT INFORMATION
  Report Type: Spontaneous
  Country: EG (occurrence: EG)
  Receive Date: 20240425
  Receipt Date: 20240425
  Transmission Date: 20240715
  Serious: Yes (Death, Hospitalization, Other)
  Sender: FDA-Public Use
  Company Number: EG-009507513-2404EGY010067

PATIENT
  Sex: Male

DRUGS (6)
  1. KEYTRUDA [Suspect]
     Active Substance: PEMBROLIZUMAB
     Indication: Non-small cell lung cancer
     Dosage: 200 MILLIGRAM, Q3W
     Route: 042
     Dates: start: 20240317, end: 20240317
  2. EMEND [Concomitant]
     Active Substance: APREPITANT
  3. TAXOL [Concomitant]
     Active Substance: PACLITAXEL
     Indication: Non-small cell lung cancer
     Dosage: 260 MILLIGRAM
     Route: 042
  4. CARBOPLATIN [Concomitant]
     Active Substance: CARBOPLATIN
     Indication: Non-small cell lung cancer
     Dosage: 600 MILLIGRAM
     Route: 042
  5. ABX 196 [Concomitant]
  6. XGEVA [Concomitant]
     Active Substance: DENOSUMAB
     Dosage: REPORTED AS X-GEVA 120

REACTIONS (3)
  - Dyspnoea [Fatal]
  - Oxygen saturation decreased [Fatal]
  - Eating disorder [Unknown]

NARRATIVE: CASE EVENT DATE: 20240101
